FAERS Safety Report 15602994 (Version 1)
Quarter: 2018Q4

REPORT INFORMATION
  Report Type: Spontaneous
  Country: US (occurrence: US)
  Receive Date: 20181106
  Receipt Date: 20181106
  Transmission Date: 20190205
  Serious: Yes (Hospitalization)
  Sender: FDA-Public Use
  Company Number: None

PATIENT
  Age: 70 Year
  Sex: Male
  Weight: 86 kg

DRUGS (2)
  1. METOPROLOL. [Suspect]
     Active Substance: METOPROLOL
     Indication: HYPERTENSION
     Route: 048
     Dates: start: 20180919, end: 20181008
  2. DILTIAZEM. [Suspect]
     Active Substance: DILTIAZEM
     Indication: HYPERTENSION
     Route: 048
     Dates: start: 20180918, end: 20181008

REACTIONS (7)
  - Hypotension [None]
  - Bradycardia [None]
  - Hyperkalaemia [None]
  - Atrioventricular block [None]
  - Dizziness [None]
  - Vision blurred [None]
  - Acute kidney injury [None]

NARRATIVE: CASE EVENT DATE: 20181008
